FAERS Safety Report 4283348-3 (Version None)
Quarter: 2004Q1

REPORT INFORMATION
  Report Type: 
  Country: None (occurrence: None)
  Receive Date: 20040129
  Receipt Date: 20040113
  Transmission Date: 20041129
  Serious: Yes (Hospitalization)
  Sender: FDA-Public Use
  Company Number: 2003SE04437

PATIENT
  Age: 63 Year
  Sex: Female
  Weight: 68 kg

DRUGS (3)
  1. BLOPRESS [Suspect]
     Indication: HYPERTENSION
     Dosage: 4 MG DAILY PO
     Route: 048
     Dates: start: 20030507, end: 20030917
  2. BLOPRESS [Suspect]
     Indication: HYPERTENSION
     Dosage: 6 MG DAILY PO
     Route: 048
     Dates: start: 20030918
  3. ALLELOCK [Concomitant]

REACTIONS (4)
  - DYSKINESIA [None]
  - HEMIPARESIS [None]
  - HYPOKINESIA [None]
  - LACUNAR INFARCTION [None]
